FAERS Safety Report 6695080-7 (Version None)
Quarter: 2010Q2

REPORT INFORMATION
  Report Type: 
  Country: None (occurrence: None)
  Receive Date: 20100423
  Receipt Date: 20100415
  Transmission Date: 20101027
  Serious: Yes (Other)
  Sender: FDA-Public Use
  Company Number: PHHY2009DE54895

PATIENT
  Sex: Male
  Weight: 82 kg

DRUGS (10)
  1. ALISKIREN ALI+ [Suspect]
     Indication: HYPERTENSION
     Dosage: UNK
     Route: 048
     Dates: start: 20081210, end: 20090714
  2. VERAPAMIL [Interacting]
     Indication: HYPERTENSION
     Dosage: 1 DF, BID
     Route: 048
  3. DIURETICS [Concomitant]
  4. NITRATES [Concomitant]
  5. PLATELET AGGREGATION INHIBITORS [Concomitant]
  6. FORMOTEROL [Concomitant]
     Indication: CHRONIC OBSTRUCTIVE PULMONARY DISEASE
     Dosage: 1 DF, BID
     Route: 048
  7. BUDESONIDE [Concomitant]
     Indication: CHRONIC OBSTRUCTIVE PULMONARY DISEASE
     Dosage: 1 DF, BID
     Route: 048
  8. TORSEMIDE [Concomitant]
     Indication: CARDIAC FAILURE
     Dosage: 1 - 0,5 - 0
     Route: 048
  9. ASPIRIN [Concomitant]
     Indication: CORONARY ARTERY DISEASE
     Dosage: 1 DF, QD
     Route: 048
  10. ALLOPURINOL [Concomitant]
     Indication: HYPERURICAEMIA
     Dosage: 1 DF, QD
     Route: 048

REACTIONS (3)
  - ANGIOEDEMA [None]
  - DRUG INTOLERANCE [None]
  - DRUG THERAPEUTIC INCOMPATIBILITY [None]
